FAERS Safety Report 17170562 (Version 1)
Quarter: 2019Q4

REPORT INFORMATION
  Report Type: Spontaneous
  Country: IN (occurrence: IN)
  Receive Date: 20191218
  Receipt Date: 20191218
  Transmission Date: 20200122
  Serious: Yes (Death, Other)
  Sender: FDA-Public Use
  Company Number: IN-PFIZER INC-2019452895

PATIENT
  Age: 73 Year
  Sex: Female

DRUGS (2)
  1. PALBACE [Suspect]
     Active Substance: PALBOCICLIB
     Indication: BREAST CANCER METASTATIC
     Dosage: 125 MG, 1X/DAY
     Route: 048
     Dates: start: 20190808, end: 201908
  2. PALBACE [Suspect]
     Active Substance: PALBOCICLIB
     Dosage: 125 MG, UNK
     Route: 048
     Dates: start: 20190814, end: 2019

REACTIONS (2)
  - Feeding disorder [Unknown]
  - Death [Fatal]

NARRATIVE: CASE EVENT DATE: 2019
